FAERS Safety Report 13773285 (Version 1)
Quarter: 2017Q3

REPORT INFORMATION
  Report Type: Spontaneous
  Country: US (occurrence: US)
  Receive Date: 20170720
  Receipt Date: 20170720
  Transmission Date: 20171127
  Serious: No
  Sender: FDA-Public Use
  Company Number: US-GALDERMA-US17001793

PATIENT
  Age: 74 Year
  Sex: Female

DRUGS (5)
  1. CALCITROL SUPPLEMENT [Concomitant]
     Indication: SUPPLEMENTATION THERAPY
  2. ICAP PILL SUPPLEMENT [Concomitant]
     Indication: SUPPLEMENTATION THERAPY
  3. FISH OIL SUPPLEMENT [Concomitant]
     Active Substance: FISH OIL
     Indication: SUPPLEMENTATION THERAPY
  4. ORACEA [Suspect]
     Active Substance: DOXYCYCLINE
     Indication: RASH
     Route: 048
     Dates: start: 20170129
  5. ORACEA [Suspect]
     Active Substance: DOXYCYCLINE
     Indication: ALOPECIA

REACTIONS (1)
  - Intentional product use issue [Recovered/Resolved]

NARRATIVE: CASE EVENT DATE: 20170129
